FAERS Safety Report 6994201-6 (Version None)
Quarter: 2010Q3

REPORT INFORMATION
  Report Type: 
  Country: None (occurrence: None)
  Receive Date: 20100917
  Receipt Date: 20090921
  Transmission Date: 20110219
  Serious: Yes (Hospitalization, Other)
  Sender: FDA-Public Use
  Company Number: US-ASTRAZENECA-2009UW21122

PATIENT
  Age: 17117 Day
  Sex: Male
  Weight: 104.3 kg

DRUGS (9)
  1. SEROQUEL XR [Suspect]
     Indication: BIPOLAR DISORDER
     Dosage: UP TO 400 MG 2 DF AT BEDTIME
     Route: 048
     Dates: start: 20070101
  2. SEROQUEL XR [Suspect]
     Dosage: DECREASED TO 400 MG AT BEDTIME
     Route: 048
  3. GEODON [Suspect]
     Indication: BIPOLAR DISORDER
     Dates: start: 20081104, end: 20090311
  4. SYMBYAX [Suspect]
     Indication: BIPOLAR DISORDER
     Dosage: 12/25 MG QD
     Dates: start: 20090311, end: 20090528
  5. ZYPREXA [Suspect]
     Route: 065
  6. CLONOPIN [Concomitant]
     Indication: ANXIETY
     Dates: start: 20070101
  7. CLONOPIN [Concomitant]
     Indication: SLEEP DISORDER
     Dates: start: 20070101
  8. DEPAKOTE ER [Concomitant]
     Indication: BIPOLAR DISORDER
     Dates: start: 20070101
  9. LITHIUM CARBONATE [Concomitant]
     Indication: BIPOLAR DISORDER
     Dates: start: 20090702, end: 20090706

REACTIONS (2)
  - BLOOD GLUCOSE INCREASED [None]
  - DIABETES MELLITUS [None]
